FAERS Safety Report 14072912 (Version 2)
Quarter: 2017Q4

REPORT INFORMATION
  Report Type: Spontaneous
  Country: MX (occurrence: MX)
  Receive Date: 20171011
  Receipt Date: 20171018
  Transmission Date: 20180321
  Serious: Yes (Hospitalization)
  Sender: FDA-Public Use
  Company Number: PHHY2017MX148986

PATIENT
  Age: 74 Year
  Sex: Male

DRUGS (3)
  1. GLIBENCLAMIDE [Concomitant]
     Active Substance: GLYBURIDE
     Indication: TYPE 2 DIABETES MELLITUS
     Dosage: 10 MG, QD
     Route: 065
  2. METFORMIN [Suspect]
     Active Substance: METFORMIN HYDROCHLORIDE
     Indication: PRODUCT USED FOR UNKNOWN INDICATION
     Dosage: 20 DF, UNK (PRESCRIBED DOSE 850 MG/DAY)
     Route: 065
  3. OLANZAPINE. [Concomitant]
     Active Substance: OLANZAPINE
     Indication: SCHIZOPHRENIA
     Route: 065

REACTIONS (17)
  - Vomiting [Recovered/Resolved]
  - Multiple organ dysfunction syndrome [Recovered/Resolved]
  - Intentional overdose [Recovered/Resolved]
  - Hyperhidrosis [Recovered/Resolved]
  - Hyperlactacidaemia [Recovered/Resolved]
  - Hyperkalaemia [Recovered/Resolved]
  - Lactic acidosis [Recovered/Resolved]
  - Nausea [Recovered/Resolved]
  - Epistaxis [Recovered/Resolved]
  - Loss of consciousness [Recovered/Resolved]
  - Nodal rhythm [Recovered/Resolved]
  - Haemodynamic instability [Recovered/Resolved]
  - Acute kidney injury [Recovered/Resolved]
  - Suicide attempt [Unknown]
  - Toxicity to various agents [Recovered/Resolved]
  - Somnolence [Recovered/Resolved]
  - Hypoglycaemia [Recovered/Resolved]
